FAERS Safety Report 9179142 (Version 2)
Quarter: 2014Q1

REPORT INFORMATION
  Report Type: Spontaneous
  Country: DE (occurrence: DE)
  Receive Date: 20121029
  Receipt Date: 20140221
  Transmission Date: 20141002
  Serious: No
  Sender: FDA-Public Use
  Company Number: DE-ROCHE-1149901

PATIENT
  Sex: 0

DRUGS (4)
  1. RITUXIMAB [Suspect]
     Indication: GRANULOMATOSIS WITH POLYANGIITIS
     Route: 065
     Dates: start: 200803
  2. RITUXIMAB [Suspect]
     Route: 065
     Dates: start: 200902
  3. RITUXIMAB [Suspect]
     Route: 065
     Dates: start: 200903
  4. ADALIMUMAB [Suspect]
     Indication: GRANULOMATOSIS WITH POLYANGIITIS
     Route: 065

REACTIONS (1)
  - Cholestasis [Unknown]
